FAERS Safety Report 4861818-4 (Version None)
Quarter: 2005Q4

REPORT INFORMATION
  Report Type: 
  Country: None (occurrence: None)
  Receive Date: 20051129
  Receipt Date: 20050505
  Transmission Date: 20060501
  Serious: Yes (Hospitalization)
  Sender: FDA-Public Use
  Company Number: USA040876949

PATIENT
  Age: 55 Year
  Sex: Female

DRUGS (6)
  1. ZYPREXA [Suspect]
     Indication: BIPOLAR DISORDER
  2. CELEXA [Concomitant]
  3. DEPAKOTE [Concomitant]
  4. WELLBUTRIN [Concomitant]
  5. SYNTHROID [Concomitant]
  6. BUSPIRONE [Concomitant]

REACTIONS (4)
  - COMA [None]
  - DIZZINESS [None]
  - HALLUCINATION [None]
  - NAUSEA [None]
